FAERS Safety Report 6172570-7 (Version None)
Quarter: 2009Q2

REPORT INFORMATION
  Report Type: 
  Country: None (occurrence: None)
  Receive Date: 20090428
  Receipt Date: 20090413
  Transmission Date: 20091009
  Serious: Yes (Other)
  Sender: FDA-Public Use
  Company Number: 2009S1006308

PATIENT
  Age: 56 Year
  Sex: Female

DRUGS (4)
  1. PACLITAXEL [Suspect]
     Indication: BREAST CANCER
     Dosage: 80 MG/M**2;/WK; INTRAVENOUS
     Route: 042
  2. DEXAMETHASONE (PREV.) [Concomitant]
  3. CIMETIDINE (CON.) [Concomitant]
  4. DIPHENHYDRAMINE (CON.) [Concomitant]

REACTIONS (3)
  - ERYTHEMA MULTIFORME [None]
  - ONYCHOLYSIS [None]
  - PHOTOSENSITIVITY REACTION [None]
